FAERS Safety Report 8937153 (Version 2)
Quarter: 2013Q1

REPORT INFORMATION
  Report Type: Spontaneous
  Country: JP (occurrence: None)
  Receive Date: 20121123
  Receipt Date: 20121228
  Transmission Date: 20140127
  Serious: Yes (Other)
  Sender: FDA-Public Use
  Company Number: JP-20120062

PATIENT
  Age: 76 Year
  Sex: Female

DRUGS (2)
  1. LIPIODOL [Suspect]
     Indication: GASTROINTESTINAL ENDOSCOPIC THERAPY
     Route: 013
  2. HISTOACRYL [Suspect]
     Indication: GASTROINTESTINAL ENDOSCOPIC THERAPY
     Route: 013

REACTIONS (5)
  - Off label use [None]
  - Melaena [None]
  - Oesophageal varices haemorrhage [None]
  - Hepatic failure [None]
  - Embolism [None]
